FAERS Safety Report 9462362 (Version 1)
Quarter: 2013Q3

REPORT INFORMATION
  Report Type: Spontaneous
  Country: US (occurrence: None)
  Receive Date: 20130815
  Receipt Date: 20130815
  Transmission Date: 20140515
  Serious: Yes (Life-Threatening, Hospitalization)
  Sender: FDA-Public Use
  Company Number: None

PATIENT
  Age: 70 Year
  Sex: Female
  Weight: 98.7 kg

DRUGS (7)
  1. XARELTO [Suspect]
     Indication: ATRIAL FIBRILLATION
     Route: 048
     Dates: start: 20130710, end: 20130812
  2. NITROGLYCERIN ( NITROSTAT) [Concomitant]
  3. RANOLAZINE [Concomitant]
  4. CARVEDILOL ( COREG) [Concomitant]
  5. POTASSIUM CHLORIDE SA ( K-DUR, KLOR-CON) [Concomitant]
  6. FUROSEMIDE ( LASIX) [Concomitant]
  7. RIVAROXABAN ( XARELTO) [Concomitant]

REACTIONS (2)
  - Gastrointestinal haemorrhage [None]
  - Haemoglobin decreased [None]
